FAERS Safety Report 6582592-X (Version None)
Quarter: 2010Q1

REPORT INFORMATION
  Report Type: 
  Country: None (occurrence: None)
  Receive Date: 20100216
  Receipt Date: 20100209
  Transmission Date: 20100710
  Serious: Yes (Other)
  Sender: FDA-Public Use
  Company Number: US-RB-019273-09

PATIENT
  Sex: Female

DRUGS (1)
  1. SUBOXONE [Suspect]
     Indication: DRUG USE FOR UNKNOWN INDICATION
     Route: 065

REACTIONS (6)
  - EUPHORIC MOOD [None]
  - HALLUCINATION [None]
  - HEADACHE [None]
  - NAUSEA [None]
  - PAIN [None]
  - WITHDRAWAL SYNDROME [None]
